FAERS Safety Report 6746842-9 (Version None)
Quarter: 2010Q2

REPORT INFORMATION
  Report Type: 
  Country: None (occurrence: None)
  Receive Date: 20100528
  Receipt Date: 20100330
  Transmission Date: 20101027
  Serious: No
  Sender: FDA-Public Use
  Company Number: A0849993A

PATIENT
  Age: 28 Year
  Sex: Female

DRUGS (2)
  1. VENTOLIN [Suspect]
     Indication: BRONCHOSPASM
     Dosage: 2PUFF SINGLE DOSE
     Route: 055
     Dates: start: 20100311, end: 20100311
  2. NO CONCURRENT MEDICATION [Concomitant]

REACTIONS (2)
  - HYPERSENSITIVITY [None]
  - RASH [None]
